FAERS Safety Report 4588320-1 (Version None)
Quarter: 2005Q1

REPORT INFORMATION
  Report Type: 
  Country: None (occurrence: None)
  Receive Date: 20050222
  Receipt Date: 20050211
  Transmission Date: 20050727
  Serious: Yes (Death, Congenital Anomaly)
  Sender: FDA-Public Use
  Company Number: NL-SOLVAY-00305000470

PATIENT
  Age: 5 Day
  Sex: Male

DRUGS (15)
  1. FEVARIN [Suspect]
     Indication: DRUG EXPOSURE DURING PREGNANCY
     Dosage: DAILY DOSE: 50 MILLIGRAM(S)
     Route: 048
     Dates: start: 20040628, end: 20040101
  2. LEVOTHYROXINUM NATRICUM [Suspect]
     Indication: DRUG EXPOSURE DURING PREGNANCY
     Dosage: DAILY DOSE: 50 MICROGRAM(S)
     Route: 048
     Dates: start: 20040204, end: 20040101
  3. THYRAX DUOTAB [Suspect]
     Indication: DRUG EXPOSURE DURING PREGNANCY
     Dosage: DAILY DOSE: .025 MILLIGRAM(S)
     Route: 048
     Dates: start: 20040202, end: 20040101
  4. ZALDIAR TABLET FILMOMHULD [Suspect]
     Indication: DRUG EXPOSURE DURING PREGNANCY
     Dosage: DAILY DOSE: 3 DOSAGE FORM
     Route: 048
     Dates: start: 20040210, end: 20040101
  5. CLOMIPRAMINI HCL [Suspect]
     Indication: DRUG EXPOSURE DURING PREGNANCY
     Dosage: DAILY DOSE: 25 MILLIGRAM(S)
     Route: 048
     Dates: start: 20040217, end: 20040101
  6. NOZINAN [Suspect]
     Indication: DRUG EXPOSURE DURING PREGNANCY
     Dosage: DAILY DOSE: 25 MILLIGRAM(S)
     Route: 048
     Dates: start: 20040405, end: 20040101
  7. DICLOFENACUM NATRICUM RETARD [Suspect]
     Indication: DRUG EXPOSURE DURING PREGNANCY
     Dosage: DAILY DOSE: 100 MILLIGRAM(S)
     Route: 048
     Dates: start: 20040523, end: 20040101
  8. TRAMADOLI HYDROCHLORIDUM [Suspect]
     Indication: DRUG EXPOSURE DURING PREGNANCY
     Dosage: DAILY DOSE: 50 MILLIGRAM(S)
     Route: 048
     Dates: start: 20040528, end: 20040101
  9. DUROGESIC 25 PLEISTER 2.5 MG [Suspect]
     Indication: DRUG EXPOSURE DURING PREGNANCY
     Dosage: DAILY DOSE: 2.5 MILLIGRAM(S)
     Route: 065
     Dates: start: 20040602, end: 20040101
  10. PARACETAMOLUM [Suspect]
     Indication: DRUG EXPOSURE DURING PREGNANCY
     Dosage: DAILY DOSE: 500 MILLIGRAM(S)
     Route: 048
     Dates: start: 20040604, end: 20040101
  11. IMPORTAL POEDER [Suspect]
     Indication: DRUG EXPOSURE DURING PREGNANCY
     Dosage: DAILY DOSE: 1 DOSAGE FORM
     Route: 065
     Dates: start: 20040604, end: 20040101
  12. AMOXICILLINUM [Suspect]
     Indication: DRUG EXPOSURE DURING PREGNANCY
     Dosage: DAILY DOSE: 1500 MILLIGRAM(S)
     Route: 048
     Dates: start: 20040608, end: 20040101
  13. NITROFURANTOINUM MC [Suspect]
     Indication: DRUG EXPOSURE DURING PREGNANCY
     Dosage: DAILY DOSE: 200 MILLIGRAM(S)
     Route: 048
     Dates: start: 20040617, end: 20040101
  14. AUGMENTIN '125' [Suspect]
     Indication: DRUG EXPOSURE DURING PREGNANCY
     Dosage: DAILY DOSE: 2 DOSAGE FORM
     Route: 048
     Dates: start: 20040618, end: 20040101
  15. HYDROXYZINI HCL [Suspect]
     Indication: DRUG EXPOSURE DURING PREGNANCY
     Dosage: DAILY DOSE: 25 MILLIGRAM(S)
     Route: 048
     Dates: start: 20040628, end: 20040101

REACTIONS (5)
  - CONGENITAL ACROCHORDON [None]
  - CONGENITAL HEARING DISORDER [None]
  - CONGENITAL HYDROCEPHALUS [None]
  - FACIAL DYSMORPHISM [None]
  - RIB DEFORMITY [None]
